FAERS Safety Report 25101033 (Version 2)
Quarter: 2025Q1

REPORT INFORMATION
  Report Type: Spontaneous
  Country: US (occurrence: US)
  Receive Date: 20250320
  Receipt Date: 20250320
  Transmission Date: 20250408
  Serious: Yes (Other)
  Sender: AMGEN
  Company Number: US-AMGEN-USASP2025051755

PATIENT
  Age: 76 Year
  Sex: Female

DRUGS (1)
  1. REPATHA [Suspect]
     Active Substance: EVOLOCUMAB
     Indication: Type IIa hyperlipidaemia
     Route: 058

REACTIONS (18)
  - Major depression [Unknown]
  - Carotid artery occlusion [Unknown]
  - Suicidal ideation [Unknown]
  - Cerebrovascular accident [Unknown]
  - Transient ischaemic attack [Unknown]
  - Apathy [Unknown]
  - Cardiac disorder [Unknown]
  - Low density lipoprotein increased [Unknown]
  - Drug ineffective [Unknown]
  - Sexual abuse [Unknown]
  - Arteritis [Unknown]
  - Hypertension [Unknown]
  - COVID-19 [Unknown]
  - Inappropriate schedule of product administration [Unknown]
  - Therapy interrupted [Unknown]
  - Post-traumatic stress disorder [Unknown]
  - Memory impairment [Unknown]
  - Influenza [Unknown]

NARRATIVE: CASE EVENT DATE: 20230101
